FAERS Safety Report 21931942 (Version 1)
Quarter: 2023Q1

REPORT INFORMATION
  Report Type: Spontaneous
  Country: US (occurrence: None)
  Receive Date: 20230131
  Receipt Date: 20230131
  Transmission Date: 20230418
  Serious: Yes (Hospitalization)
  Sender: FDA-Public Use
  Company Number: None

PATIENT
  Age: 57 Year
  Sex: Male
  Weight: 96.9 kg

DRUGS (3)
  1. PAXLOVID [Suspect]
     Active Substance: NIRMATRELVIR\RITONAVIR
     Indication: COVID-19
     Dosage: FREQUENCY : TWICE A DAY;?
     Route: 048
     Dates: start: 20230128, end: 20230128
  2. REMDESIVIR [Concomitant]
     Active Substance: REMDESIVIR
     Dates: start: 20230129, end: 20230129
  3. DILTIAZEM [Concomitant]
     Active Substance: DILTIAZEM
     Dates: start: 20230128, end: 20230128

REACTIONS (6)
  - Acute hepatic failure [None]
  - Hepatic steatosis [None]
  - Gallbladder enlargement [None]
  - Blood creatine increased [None]
  - Blood potassium increased [None]
  - Blood lactic acid increased [None]

NARRATIVE: CASE EVENT DATE: 20230129
